FAERS Safety Report 5698059-7 (Version None)
Quarter: 2008Q2

REPORT INFORMATION
  Report Type: 
  Country: None (occurrence: None)
  Receive Date: 20080408
  Receipt Date: 20080402
  Transmission Date: 20081010
  Serious: Yes (Other)
  Sender: FDA-Public Use
  Company Number: ES-ROCHE-556452

PATIENT
  Age: 54 Year
  Sex: Female

DRUGS (7)
  1. RIVOTRIL [Suspect]
     Indication: EPILEPSY
     Route: 048
     Dates: start: 20040101, end: 20080222
  2. NEOSIDANTOINA [Suspect]
     Indication: EPILEPSY
     Dosage: STRENGTH REPORTED AS 100.
     Route: 048
     Dates: start: 19960101
  3. DOGMATIL [Suspect]
     Indication: DIZZINESS
     Route: 048
     Dates: start: 20071201, end: 20080222
  4. DEPAKENE [Suspect]
     Indication: EPILEPSY
     Dosage: FORM REPORTED AS GASTRORESISTENT TABLETS.
     Route: 048
     Dates: start: 19960101
  5. CITALOPRAM HYDROBROMIDE [Suspect]
     Indication: DEPRESSION
     Dosage: DRUG REPORTED AS CYTALOPRAM.
     Route: 048
     Dates: start: 20040101, end: 20080222
  6. DEXKETOPROFEN [Suspect]
     Dosage: DRUG REPORTED AS DEXKETROPROPHEN
     Route: 065
     Dates: start: 20080220, end: 20080222
  7. CHONDROITIN SULFATE [Suspect]
     Dosage: STRENGTH REPORTED AS ^400^. DRUG REPORTED AS CONDROSAN.
     Route: 048
     Dates: start: 20080222

REACTIONS (1)
  - METRORRHAGIA [None]
